FAERS Safety Report 8922035 (Version 1)
Quarter: 2012Q4

REPORT INFORMATION
  Report Type: 
  Country: US (occurrence: US)
  Receive Date: 20121126
  Receipt Date: 20121126
  Transmission Date: 20130627
  Serious: Yes (Hospitalization, Other)
  Sender: FDA-Public Use
  Company Number: US-BAYER-2012-122282

PATIENT
  Age: 62 Year
  Sex: Female

DRUGS (2)
  1. BETASERON [Suspect]
     Indication: RELAPSING-REMITTING MULTIPLE SCLEROSIS
     Dosage: UNK
     Dates: start: 20000112, end: 20120612
  2. BETASERON [Suspect]
     Indication: RELAPSING-REMITTING MULTIPLE SCLEROSIS
     Dosage: 8 miu, UNK
     Dates: start: 20120712

REACTIONS (10)
  - Hypoaesthesia [None]
  - Pain [None]
  - Pneumonia [None]
  - Asthma [None]
  - Abdominal wall infection [None]
  - Multiple sclerosis relapse [None]
  - Injection site erythema [None]
  - Scar [None]
  - Weight decreased [None]
  - Visual impairment [None]
